FAERS Safety Report 21682894 (Version 3)
Quarter: 2023Q2

REPORT INFORMATION
  Report Type: Report from Study
  Country: US (occurrence: US)
  Receive Date: 20221205
  Receipt Date: 20230426
  Transmission Date: 20230721
  Serious: No
  Sender: FDA-Public Use
  Company Number: US-ABBVIE-4218393

PATIENT
  Sex: Female

DRUGS (1)
  1. HUMIRA [Suspect]
     Active Substance: ADALIMUMAB
     Indication: Crohn^s disease
     Dosage: CITRATE FREE - FORM STRENGTH: 40MG
     Route: 058
     Dates: start: 20220710

REACTIONS (3)
  - Nausea [Recovering/Resolving]
  - Therapeutic product effect decreased [Recovering/Resolving]
  - Gastric disorder [Not Recovered/Not Resolved]
